FAERS Safety Report 26074837 (Version 1)
Quarter: 2025Q4

REPORT INFORMATION
  Report Type: Spontaneous
  Country: EU (occurrence: EU)
  Receive Date: 20251121
  Receipt Date: 20251121
  Transmission Date: 20260118
  Serious: Yes (Hospitalization)
  Sender: RANBAXY
  Company Number: EU-AEMPS-1739923

PATIENT
  Age: 72 Year
  Sex: Female

DRUGS (2)
  1. TICAGRELOR [Interacting]
     Active Substance: TICAGRELOR
     Indication: Cardiovascular event prophylaxis
     Dosage: 90 MILLIGRAM, BID
     Route: 048
     Dates: start: 20250102, end: 20250113
  2. ASPIRIN [Interacting]
     Active Substance: ASPIRIN
     Indication: Cerebrovascular accident prophylaxis
     Dosage: 100 MILLIGRAM, QD
     Route: 048
     Dates: start: 20130802

REACTIONS (1)
  - Lower gastrointestinal haemorrhage [Recovered/Resolved]

NARRATIVE: CASE EVENT DATE: 20250113
